FAERS Safety Report 7518391-1 (Version None)
Quarter: 2011Q2

REPORT INFORMATION
  Report Type: 
  Country: None (occurrence: None)
  Receive Date: 20110602
  Receipt Date: 20110512
  Transmission Date: 20111010
  Serious: No
  Sender: FDA-Public Use
  Company Number: US-B.I. PHARMACEUTICALS,INC./RIDGEFIELD-2011-BP-11801BP

PATIENT
  Sex: Female

DRUGS (9)
  1. METHOTREXATE [Concomitant]
  2. PROPRANOLOL [Concomitant]
  3. SPIRIVA [Suspect]
     Indication: AUTOIMMUNE DISORDER
  4. PRILOSEC [Concomitant]
  5. WARFARIN SODIUM [Concomitant]
  6. SPIRIVA [Suspect]
     Indication: CHRONIC OBSTRUCTIVE PULMONARY DISEASE
     Dosage: 18 MCG
     Dates: start: 20050101
  7. SUCRALFATE [Concomitant]
  8. PREDNISONE [Concomitant]
  9. FUROSEMIDE [Concomitant]

REACTIONS (1)
  - GENERAL PHYSICAL HEALTH DETERIORATION [None]
